FAERS Safety Report 8165277-8 (Version None)
Quarter: 2012Q1

REPORT INFORMATION
  Report Type: 
  Country: None (occurrence: None)
  Receive Date: 20120223
  Receipt Date: 20120223
  Transmission Date: 20120608
  Serious: Yes (Death, Other)
  Sender: FDA-Public Use
  Company Number: None

PATIENT
  Age: 28 Year
  Sex: Female
  Weight: 58.9676 kg

DRUGS (1)
  1. SERTRALINE HYDROCHLORIDE [Suspect]
     Indication: MAJOR DEPRESSION
     Dosage: 100MG TWO QD PO
     Route: 048
     Dates: start: 20080118, end: 20080128

REACTIONS (2)
  - AFFECTIVE DISORDER [None]
  - PRODUCT SUBSTITUTION ISSUE [None]
